FAERS Safety Report 19653793 (Version 1)
Quarter: 2021Q3

REPORT INFORMATION
  Report Type: Spontaneous
  Country: US (occurrence: US)
  Receive Date: 20210803
  Receipt Date: 20210803
  Transmission Date: 20211014
  Serious: Yes (Hospitalization)
  Sender: FDA-Public Use
  Company Number: US-TEVA-2021-US-1938255

PATIENT
  Age: 79 Year
  Sex: Male

DRUGS (4)
  1. METHYLPREDNISOLONE. [Suspect]
     Active Substance: METHYLPREDNISOLONE
     Indication: PREMEDICATION
     Route: 065
  2. TAGRAXOFUSP. [Suspect]
     Active Substance: TAGRAXOFUSP
     Dosage: 5 UG/KG DAILY; FIRST?LINE TREATMENT (CYCLE 2?7)
     Route: 042
  3. TAGRAXOFUSP. [Suspect]
     Active Substance: TAGRAXOFUSP
     Indication: BLASTIC PLASMACYTOID DENDRITIC CELL NEOPLASIA
     Dosage: 12 UG/KG DAILY; FIRST?LINE TREATMENT WHICH WAS SCHEDULED ON DAYS 1?5 OF A 21 DAY CYCLE (FIRST CYCLE)
     Route: 042
  4. TAGRAXOFUSP. [Suspect]
     Active Substance: TAGRAXOFUSP
     Dosage: 7 UG/KG DAILY; FIRST?LINE TREATMENT (CYCLE 8)
     Route: 042

REACTIONS (12)
  - Hyperglycaemia [Recovering/Resolving]
  - Pancreatitis [Recovering/Resolving]
  - Acute kidney injury [Recovering/Resolving]
  - Hypertension [Recovering/Resolving]
  - Thrombocytopenia [Recovering/Resolving]
  - Anaemia [Recovering/Resolving]
  - Capillary leak syndrome [Recovering/Resolving]
  - Alanine aminotransferase increased [Recovering/Resolving]
  - Hypoalbuminaemia [Recovering/Resolving]
  - Acute myocardial infarction [Recovering/Resolving]
  - Aspartate aminotransferase increased [Recovering/Resolving]
  - Blood bilirubin increased [Recovering/Resolving]
